FAERS Safety Report 10078551 (Version 1)
Quarter: 2014Q2

REPORT INFORMATION
  Report Type: Spontaneous
  Country: NL (occurrence: NL)
  Receive Date: 20140415
  Receipt Date: 20140415
  Transmission Date: 20141212
  Serious: Yes (Hospitalization, Other)
  Sender: FDA-Public Use
  Company Number: NL-INCYTE CORPORATION-2014IN000957

PATIENT
  Age: 66 Year
  Sex: Male

DRUGS (2)
  1. JAKAVI [Suspect]
     Indication: REFRACTORY ANAEMIA WITH RINGED SIDEROBLASTS
     Dosage: UNK UNK, UNK
     Route: 065
     Dates: start: 201305
  2. JAKAVI [Suspect]
     Indication: THALASSAEMIA ALPHA
     Dosage: 2 DD 25 MG
     Route: 065

REACTIONS (7)
  - Haemarthrosis [Recovered/Resolved]
  - Platelet count decreased [Unknown]
  - Hyperhidrosis [Unknown]
  - Malaise [Unknown]
  - White blood cell count increased [Unknown]
  - Weight increased [Unknown]
  - Drug ineffective [Unknown]
